FAERS Safety Report 15508678 (Version 1)
Quarter: 2020Q3

REPORT INFORMATION
  Report Type: Report from Study
  Country: DE (occurrence: DE)
  Receive Date: 20181016
  Receipt Date: 20181016
  Transmission Date: 20201105
  Serious: Yes (Life-Threatening, Hospitalization, Other)
  Sender: FDA-Public Use
  Company Number: DE-TEVA-2018-DE-964256

PATIENT
  Age: 55 Year
  Sex: Male
  Weight: 125 kg

DRUGS (11)
  1. MACROGOL [Concomitant]
     Active Substance: POLYETHYLENE GLYCOLS
     Dosage: 1 DOSAGE FORMS DAILY; DAILY DOSE: 1 DF DOSAGE FORM EVERY DAY
     Route: 065
  2. LEVETIRACETAM. [Concomitant]
     Active Substance: LEVETIRACETAM
     Dosage: 1500 MILLIGRAM DAILY; DAILY DOSE: 3000 MG MILLIGRAM(S) EVERY DAY
     Route: 065
  3. VALPROINSAEURE [Concomitant]
     Active Substance: VALPROIC ACID
     Dosage: 600 MILLIGRAM DAILY; DAILY DOSE: 1800 MG MILLIGRAM(S) EVERY DAY
     Route: 065
  4. DEXAMETHASON [Suspect]
     Active Substance: DEXAMETHASONE
     Indication: PRODUCT USED FOR UNKNOWN INDICATION
     Route: 065
     Dates: start: 20160419
  5. FLU VACCINATION [Concomitant]
     Active Substance: INFLUENZA VIRUS VACCINE
     Route: 065
  6. RAMIPRIL. [Concomitant]
     Active Substance: RAMIPRIL
     Dosage: 5 MILLIGRAM DAILY; DAILY DOSE: 5 MG MILLIGRAM(S) EVERY DAY
     Route: 065
  7. ARCOXIA [Concomitant]
     Active Substance: ETORICOXIB
     Route: 065
  8. METFORMIN [Concomitant]
     Active Substance: METFORMIN HYDROCHLORIDE
     Dosage: 600 MILLIGRAM DAILY; DAILY DOSE: 1000 MG MILLIGRAM(S) EVERY DAY
     Route: 065
  9. BERODUAL [Concomitant]
     Active Substance: FENOTEROL HYDROBROMIDE\IPRATROPIUM BROMIDE
     Route: 065
  10. ALECTINIB. [Suspect]
     Active Substance: ALECTINIB
     Indication: NON-SMALL CELL LUNG CANCER
     Dosage: 600 MILLIGRAM DAILY; DAILY DOSE: 1200 MG MILLIGRAM(S) EVERY DAY
     Route: 048
     Dates: start: 20150714, end: 20150914
  11. ALLOPURINOL. [Concomitant]
     Active Substance: ALLOPURINOL
     Dosage: 150 MILLIGRAM DAILY; DAILY DOSE: 150 MG MILLIGRAM(S) EVERY DAY
     Route: 065

REACTIONS (14)
  - Sepsis [Not Recovered/Not Resolved]
  - Diabetes mellitus [Recovered/Resolved]
  - Diverticulitis [Unknown]
  - General physical health deterioration [Unknown]
  - Renal failure [Not Recovered/Not Resolved]
  - Ketoacidosis [Unknown]
  - Obesity [Unknown]
  - Status epilepticus [Unknown]
  - Diverticular perforation [Unknown]
  - Neurological decompensation [Unknown]
  - Obstructive airways disorder [Unknown]
  - Polyneuropathy [Unknown]
  - Peritonitis [Recovered/Resolved]
  - Pneumonia [Unknown]

NARRATIVE: CASE EVENT DATE: 201607
